FAERS Safety Report 24378938 (Version 1)
Quarter: 2024Q3

REPORT INFORMATION
  Report Type: Spontaneous
  Country: US (occurrence: US)
  Receive Date: 20240930
  Receipt Date: 20240930
  Transmission Date: 20241016
  Serious: No
  Sender: PHARMACOSMOS
  Company Number: US-NEBO-668861

PATIENT
  Age: 47 Year
  Sex: Female

DRUGS (1)
  1. MONOFERRIC [Suspect]
     Active Substance: FERRIC DERISOMALTOSE
     Indication: Iron deficiency anaemia
     Dates: start: 20240903, end: 20240903

REACTIONS (3)
  - Rash [Unknown]
  - Pruritus [Unknown]
  - Feeling hot [Unknown]

NARRATIVE: CASE EVENT DATE: 20240904
